FAERS Safety Report 14314619 (Version 1)
Quarter: 2017Q4

REPORT INFORMATION
  Report Type: Spontaneous
  Country: US (occurrence: US)
  Receive Date: 20171221
  Receipt Date: 20171221
  Transmission Date: 20180321
  Serious: No
  Sender: FDA-Public Use
  Company Number: None

PATIENT
  Age: 9 Year
  Sex: Male
  Weight: 30.15 kg

DRUGS (5)
  1. ETHOSUXIMIDE. [Concomitant]
     Active Substance: ETHOSUXIMIDE
  2. ONFI [Suspect]
     Active Substance: CLOBAZAM
     Indication: SEIZURE
     Dosage: ?          QUANTITY:2 TABLET(S);?
     Route: 048
     Dates: start: 20121101
  3. DIVALPROEX [Concomitant]
     Active Substance: DIVALPROEX SODIUM
  4. RANITIDINE. [Concomitant]
     Active Substance: RANITIDINE
  5. DIASTAT [Concomitant]
     Active Substance: DIAZEPAM

REACTIONS (3)
  - Nausea [None]
  - Headache [None]
  - Pain [None]

NARRATIVE: CASE EVENT DATE: 20171221
